FAERS Safety Report 21540609 (Version 1)
Quarter: 2022Q4

REPORT INFORMATION
  Report Type: Report from Study
  Country: US (occurrence: US)
  Receive Date: 20221102
  Receipt Date: 20221102
  Transmission Date: 20230113
  Serious: No
  Sender: FDA-Public Use
  Company Number: US-ABBVIE-4149973

PATIENT

DRUGS (4)
  1. HUMIRA [Suspect]
     Active Substance: ADALIMUMAB
     Indication: Crohn^s disease
     Route: 058
  2. Moderna [Concomitant]
     Indication: COVID-19 immunisation
     Dosage: 1 IN ONCE FIRST DOSE
     Route: 030
     Dates: start: 20210311, end: 20210311
  3. Moderna [Concomitant]
     Indication: COVID-19 immunisation
     Dosage: 1 IN ONCE SECOND DOSE
     Route: 030
     Dates: start: 20210408, end: 20210408
  4. Moderna [Concomitant]
     Indication: COVID-19 immunisation
     Dosage: 1 IN ONCE BOOSTER DOSE
     Route: 030
     Dates: start: 20211201, end: 20211201

REACTIONS (2)
  - Crohn^s disease [Unknown]
  - Coronavirus infection [Unknown]
